FAERS Safety Report 7879855-4 (Version None)
Quarter: 2011Q4

REPORT INFORMATION
  Report Type: 
  Country: None (occurrence: None)
  Receive Date: 20111101
  Receipt Date: 20111020
  Transmission Date: 20120403
  Serious: Yes (Hospitalization)
  Sender: FDA-Public Use
  Company Number: JP-ROCHE-1004715

PATIENT
  Sex: Male
  Weight: 64 kg

DRUGS (3)
  1. AVASTIN [Suspect]
     Indication: COLON CANCER METASTATIC
     Dosage: DOSAGE IS UNCERTAIN.
     Route: 041
     Dates: start: 20110329, end: 20110913
  2. XELODA [Suspect]
     Indication: COLON CANCER METASTATIC
     Route: 048
     Dates: start: 20110329, end: 20110913
  3. OXALIPLATIN [Suspect]
     Indication: COLON CANCER METASTATIC
     Route: 041
     Dates: start: 20110329, end: 20110913

REACTIONS (1)
  - DUODENAL ULCER PERFORATION [None]
